FAERS Safety Report 16840502 (Version 8)
Quarter: 2020Q4

REPORT INFORMATION
  Report Type: Report from Study
  Country: MX (occurrence: MX)
  Receive Date: 20190923
  Receipt Date: 20201203
  Transmission Date: 20210113
  Serious: Yes (Life-Threatening, Hospitalization)
  Sender: FDA-Public Use
  Company Number: PHHY2019MX218854

PATIENT
  Age: 0 Day
  Sex: Female
  Weight: 9.4 kg

DRUGS (2)
  1. TEGRETOL [Suspect]
     Active Substance: CARBAMAZEPINE
     Indication: SEIZURE
     Dosage: 200 MG, BID (IN THE MORNING AND AT NIGHT)
     Route: 064
  2. TEGRETOL [Suspect]
     Active Substance: CARBAMAZEPINE
     Indication: SEIZURE
     Dosage: 200 MG, BID (IN THE MORNING AND AT NIGHT) (MATERNAL DOSE)
     Route: 064
     Dates: start: 201904

REACTIONS (4)
  - Sepsis neonatal [Recovered/Resolved]
  - Hypoventilation neonatal [Recovering/Resolving]
  - Foetal exposure during pregnancy [Unknown]
  - Exposure via breast milk [Unknown]

NARRATIVE: CASE EVENT DATE: 20190711
